FAERS Safety Report 19356288 (Version 1)
Quarter: 2021Q2

REPORT INFORMATION
  Report Type: Report from Study
  Country: IR (occurrence: IR)
  Receive Date: 20210601
  Receipt Date: 20210601
  Transmission Date: 20210717
  Serious: Yes (Other)
  Sender: FDA-Public Use
  Company Number: IR-REGENERON PHARMACEUTICALS, INC.-2021-54968

PATIENT

DRUGS (3)
  1. OMEGA VISION [Concomitant]
     Indication: PRODUCT USED FOR UNKNOWN INDICATION
     Dosage: UNK; N=1 BD
  2. EYLEA [Suspect]
     Active Substance: AFLIBERCEPT
     Indication: NEOVASCULAR AGE-RELATED MACULAR DEGENERATION
     Dosage: 2 MG; TOTAL NUMBER OF DOSES UNK; LAST DOSE UNK
     Route: 031
     Dates: start: 20191230
  3. CHLORAMPHENICOL [Concomitant]
     Active Substance: CHLORAMPHENICOL
     Indication: PRODUCT USED FOR UNKNOWN INDICATION
     Dosage: UNK, DROP
     Route: 047

REACTIONS (1)
  - Conjunctivitis [Recovering/Resolving]

NARRATIVE: CASE EVENT DATE: 20210506
